FAERS Safety Report 15093443 (Version 1)
Quarter: 2018Q2

REPORT INFORMATION
  Report Type: Other
  Country: US (occurrence: US)
  Receive Date: 20180629
  Receipt Date: 20180629
  Transmission Date: 20180711
  Serious: No
  Sender: FDA-Public Use
  Company Number: US-MERZ NORTH AMERICA, INC.-18MRZ-00322

PATIENT
  Sex: Female

DRUGS (4)
  1. FLONASE [Concomitant]
     Active Substance: FLUTICASONE PROPIONATE
  2. PRILOSEC [Concomitant]
     Active Substance: OMEPRAZOLE MAGNESIUM
     Indication: GASTROOESOPHAGEAL REFLUX DISEASE
  3. XEOMIN [Suspect]
     Active Substance: INCOBOTULINUMTOXINA
     Indication: SKIN COSMETIC PROCEDURE
     Dosage: ^1 ML^
  4. RADIESSE [Suspect]
     Active Substance: TRIBASIC CALCIUM PHOSPHATE
     Indication: SKIN COSMETIC PROCEDURE

REACTIONS (3)
  - Swelling [Recovered/Resolved]
  - Pain [Recovered/Resolved]
  - Injection site pain [Recovered/Resolved]
